FAERS Safety Report 14537918 (Version 2)
Quarter: 2018Q1

REPORT INFORMATION
  Report Type: Spontaneous
  Country: PT (occurrence: PT)
  Receive Date: 20180216
  Receipt Date: 20180228
  Transmission Date: 20180509
  Serious: Yes (Other)
  Sender: FDA-Public Use
  Company Number: PT-ROCHE-2069144

PATIENT
  Sex: Female
  Weight: 69 kg

DRUGS (4)
  1. LYRICA [Concomitant]
     Active Substance: PREGABALIN
     Route: 048
     Dates: start: 201701
  2. TEGRETOL [Concomitant]
     Active Substance: CARBAMAZEPINE
     Route: 048
     Dates: start: 2001
  3. EFEXOR [Concomitant]
     Active Substance: VENLAFAXINE HYDROCHLORIDE
     Route: 048
     Dates: start: 201609
  4. KADCYLA [Suspect]
     Active Substance: ADO-TRASTUZUMAB EMTANSINE
     Indication: BREAST CANCER METASTATIC
     Route: 042
     Dates: start: 201606

REACTIONS (1)
  - Cerebral microhaemorrhage [Unknown]

NARRATIVE: CASE EVENT DATE: 201708
